FAERS Safety Report 7298398-2 (Version None)
Quarter: 2011Q1

REPORT INFORMATION
  Report Type: 
  Country: None (occurrence: None)
  Receive Date: 20110217
  Receipt Date: 20100506
  Transmission Date: 20110831
  Serious: No
  Sender: FDA-Public Use
  Company Number: US-PFIZER INC-2010058115

PATIENT
  Sex: Female

DRUGS (4)
  1. LEVOXYL [Concomitant]
     Dosage: 50 UG, UNK
  2. XALATAN [Suspect]
     Dosage: UNK
  3. AVAPRO [Concomitant]
     Dosage: 300 MG, UNK
  4. AMLODIPINE [Concomitant]
     Dosage: 5 MG, UNK

REACTIONS (1)
  - EYE IRRITATION [None]
